FAERS Safety Report 6826059-X (Version None)
Quarter: 2010Q3

REPORT INFORMATION
  Report Type: 
  Country: None (occurrence: None)
  Receive Date: 20100709
  Receipt Date: 20100630
  Transmission Date: 20110219
  Serious: Yes (Hospitalization, Other)
  Sender: FDA-Public Use
  Company Number: BR-ASTRAZENECA-2010SE30913

PATIENT
  Age: 87 Year
  Sex: Female

DRUGS (7)
  1. SELOZOK [Suspect]
     Indication: ARRHYTHMIA
     Route: 048
     Dates: start: 20080101, end: 20100101
  2. SELOZOK [Suspect]
     Route: 048
     Dates: start: 20100101
  3. PURAN T4 [Concomitant]
     Indication: HYPOTHYROIDISM
     Route: 048
  4. LOSARTAN POTASSIUM [Concomitant]
     Indication: ARRHYTHMIA
     Route: 048
     Dates: end: 20100601
  5. CALCITRIOL [Concomitant]
     Indication: CALCINOSIS
     Route: 048
     Dates: end: 20100601
  6. LIPITOR [Concomitant]
     Dates: end: 20100601
  7. VENALOT [Concomitant]
     Indication: POOR PERIPHERAL CIRCULATION
     Dates: end: 20100601

REACTIONS (5)
  - CONVULSION [None]
  - DYSPHAGIA [None]
  - ERYSIPELAS [None]
  - HEART RATE INCREASED [None]
  - HYPOTENSION [None]
